FAERS Safety Report 17074119 (Version 1)
Quarter: 2019Q4

REPORT INFORMATION
  Report Type: Spontaneous
  Country: CN (occurrence: CN)
  Receive Date: 20191126
  Receipt Date: 20191126
  Transmission Date: 20200122
  Serious: Yes (Other)
  Sender: FDA-Public Use
  Company Number: CN-BAXTER-2019BAX023863

PATIENT
  Age: 53 Year
  Sex: Female
  Weight: 52.3 kg

DRUGS (4)
  1. 0.9% SODIUM CHLORIDE INJECTION [Suspect]
     Active Substance: SODIUM CHLORIDE
     Indication: MEDICATION DILUTION
     Dosage: CYCLOPHOSPHAMIDE 900 MG + 0.9% SODIUM CHLORIDE
     Route: 041
     Dates: start: 20191031, end: 20191031
  2. 5% GLUCOSE  INJECTION [Suspect]
     Active Substance: DEXTROSE
     Indication: MEDICATION DILUTION
     Dosage: EPIRUBICIN 100 MG + 5% GLUCOSE INJECTION
     Route: 041
     Dates: start: 20191031, end: 20191031
  3. EPIRUBICIN HYDROCHLORIDE. [Suspect]
     Active Substance: EPIRUBICIN HYDROCHLORIDE
     Indication: DIFFUSE LARGE B-CELL LYMPHOMA
     Dosage: ADALAT + 5% GLUCOSE INJECTION 100 ML
     Route: 041
     Dates: start: 20191031, end: 20191031
  4. ENDOXAN [Suspect]
     Active Substance: CYCLOPHOSPHAMIDE
     Indication: DIFFUSE LARGE B-CELL LYMPHOMA
     Dosage: CYCLOPHOSPHAMIDE + 0.9% SODIUM CHLORIDE 100 ML
     Route: 041
     Dates: start: 20191031, end: 20191031

REACTIONS (2)
  - Bone marrow failure [Recovered/Resolved]
  - Granulocytopenia [Recovered/Resolved]

NARRATIVE: CASE EVENT DATE: 20191108
